FAERS Safety Report 23418327 (Version 3)
Quarter: 2024Q2

REPORT INFORMATION
  Report Type: Report from Study
  Country: US (occurrence: US)
  Receive Date: 20240118
  Receipt Date: 20240403
  Transmission Date: 20240715
  Serious: Yes (Hospitalization)
  Sender: FDA-Public Use
  Company Number: US-Eisai-EC-2023-152519

PATIENT
  Age: 76 Year
  Sex: Male
  Weight: 83.45 kg

DRUGS (14)
  1. LENVIMA [Suspect]
     Active Substance: LENVATINIB
     Indication: Renal cell carcinoma
     Route: 048
     Dates: start: 202310, end: 202312
  2. LENVIMA [Suspect]
     Active Substance: LENVATINIB
     Route: 048
     Dates: start: 20231221
  3. LENVIMA [Suspect]
     Active Substance: LENVATINIB
     Route: 048
     Dates: end: 202403
  4. CABOMETYX [Suspect]
     Active Substance: CABOZANTINIB S-MALATE
     Indication: Renal cancer
     Dates: start: 20211028, end: 202312
  5. ULORIC [Concomitant]
     Active Substance: FEBUXOSTAT
  6. BENICAR [Concomitant]
     Active Substance: OLMESARTAN MEDOXOMIL
  7. TYLENOL EXTRA STRENGTH [Concomitant]
     Active Substance: ACETAMINOPHEN
  8. EVEROLIMUS [Concomitant]
     Active Substance: EVEROLIMUS
  9. OMEPRAZOLE [Concomitant]
     Active Substance: OMEPRAZOLE
  10. AMLODIPINE BESYLATE [Concomitant]
     Active Substance: AMLODIPINE BESYLATE
  11. MAGNESIUM [Concomitant]
     Active Substance: MAGNESIUM
  12. VITAMINS [Concomitant]
     Active Substance: VITAMINS
  13. ATORVASTATIN CALCIUM [Concomitant]
     Active Substance: ATORVASTATIN CALCIUM
  14. ASPIRIN [Concomitant]
     Active Substance: ASPIRIN

REACTIONS (8)
  - Abdominal discomfort [Unknown]
  - Pleural effusion [Unknown]
  - Pneumothorax [Unknown]
  - Diarrhoea [Unknown]
  - Decreased appetite [Unknown]
  - Oral pain [Unknown]
  - Pulmonary congestion [Not Recovered/Not Resolved]
  - Product blister packaging issue [Unknown]

NARRATIVE: CASE EVENT DATE: 20230101
